FAERS Safety Report 5829259-0 (Version None)
Quarter: 2008Q3

REPORT INFORMATION
  Report Type: 
  Country: None (occurrence: None)
  Receive Date: 20080731
  Receipt Date: 20080724
  Transmission Date: 20090109
  Serious: Yes (Other)
  Sender: FDA-Public Use
  Company Number: US-BOEHRINGER INGELHEIM GMBH, GERMANY-2008-BP-11712BP

PATIENT
  Sex: Female
  Weight: 64 kg

DRUGS (1)
  1. ZANTAC 150 [Suspect]
     Indication: ULCER
     Route: 048
     Dates: start: 20050101

REACTIONS (1)
  - ABORTION SPONTANEOUS [None]
